FAERS Safety Report 7711246-9 (Version None)
Quarter: 2011Q3

REPORT INFORMATION
  Report Type: 
  Country: None (occurrence: None)
  Receive Date: 20110826
  Receipt Date: 20110819
  Transmission Date: 20111222
  Serious: No
  Sender: FDA-Public Use
  Company Number: US-BIOGENIDEC-2011BI031855

PATIENT
  Age: 41 Year
  Sex: Female

DRUGS (4)
  1. ZOLOFT [Concomitant]
     Indication: ANGER
     Dates: start: 20090101
  2. VESICARE [Concomitant]
     Indication: BLADDER DISORDER
     Dates: start: 20110101
  3. AVONEX [Suspect]
     Indication: MULTIPLE SCLEROSIS
     Route: 030
     Dates: start: 20110818
  4. AMANTADINE HCL [Concomitant]
     Indication: ANTIVIRAL PROPHYLAXIS

REACTIONS (5)
  - ABDOMINAL PAIN UPPER [None]
  - VISION BLURRED [None]
  - HEADACHE [None]
  - INFLUENZA LIKE ILLNESS [None]
  - BALANCE DISORDER [None]
